FAERS Safety Report 18313273 (Version 1)
Quarter: 2020Q3

REPORT INFORMATION
  Report Type: Spontaneous
  Country: ES (occurrence: ES)
  Receive Date: 20200925
  Receipt Date: 20200925
  Transmission Date: 20201103
  Serious: Yes (Death, Hospitalization)
  Sender: FDA-Public Use
  Company Number: ES-CADILA HEALTHCARE LIMITED-ES-ZYDUS-027526

PATIENT

DRUGS (10)
  1. OMEPRAZOL [Concomitant]
     Active Substance: OMEPRAZOLE
     Indication: PROPHYLAXIS AGAINST GASTROINTESTINAL ULCER
     Dosage: 20 MILLIGRAM,(INTERVAL :1 DAYS)
     Route: 048
     Dates: start: 20120608, end: 20180112
  2. AMLODIPINE [Suspect]
     Active Substance: AMLODIPINE BESYLATE
     Dosage: 5 MILLIGRAM,(INTERVAL :1 DAYS)
     Route: 048
     Dates: start: 20120412, end: 20160523
  3. ATORVASTATIN [Concomitant]
     Active Substance: ATORVASTATIN
     Indication: HYPERCHOLESTEROLAEMIA
     Dosage: 10 MILLIGRAM,(INTERVAL :1 DAYS)
     Route: 048
     Dates: start: 20120608, end: 20180112
  4. HYDREA [Concomitant]
     Active Substance: HYDROXYUREA
     Indication: THROMBOCYTOSIS
     Dosage: 500 MILLIGRAM,20 CAPSULES,(INTERVAL :1 DAYS)
     Route: 048
     Dates: start: 20131010, end: 20180112
  5. ASPIRIN. [Concomitant]
     Active Substance: ASPIRIN
     Indication: ISCHAEMIC HEART DISEASE PROPHYLAXIS
     Dosage: 100 MILLIGRAM,(INTERVAL :1 DAYS)
     Route: 048
     Dates: start: 20120608, end: 20180112
  6. FUROSEMIDE. [Suspect]
     Active Substance: FUROSEMIDE
     Indication: PRODUCT USED FOR UNKNOWN INDICATION
     Dosage: 40 MILLIGRAM,(INTERVAL :1 DAYS)
     Route: 048
     Dates: start: 20160517, end: 20160530
  7. PLUSVENT [Concomitant]
     Active Substance: FLUTICASONE PROPIONATE\SALMETEROL XINAFOATE
     Indication: CHRONIC OBSTRUCTIVE PULMONARY DISEASE
     Dosage: 1 DOSAGE FORM,(INTERVAL :12 HOURS)
     Route: 055
     Dates: start: 20120229, end: 20180112
  8. SPIRIVA [Concomitant]
     Active Substance: TIOTROPIUM BROMIDE MONOHYDRATE
     Indication: CHRONIC OBSTRUCTIVE PULMONARY DISEASE
     Dosage: 18 MICROGRAM,(INTERVAL :1 DAYS)
     Route: 055
     Dates: start: 20120229, end: 20180112
  9. ENALAPRIL + HYDROCHLOROTHIAZIDE [Suspect]
     Active Substance: ENALAPRIL MALEATE\HYDROCHLOROTHIAZIDE
     Indication: HYPERTENSION
     Dosage: 1 DOSAGE FORM,(INTERVAL :1 DAYS)
     Route: 048
     Dates: start: 20141213, end: 20160523
  10. LEVOFLOXACIN. [Concomitant]
     Active Substance: LEVOFLOXACIN
     Indication: CHRONIC OBSTRUCTIVE PULMONARY DISEASE
     Dosage: 500 MILLIGRAM,(INTERVAL :1 DAYS)
     Route: 048
     Dates: start: 20160517, end: 20160525

REACTIONS (2)
  - Syncope [Recovered/Resolved]
  - Hypotension [Recovered/Resolved]

NARRATIVE: CASE EVENT DATE: 20160521
